FAERS Safety Report 9518188 (Version 3)
Quarter: 2013Q4

REPORT INFORMATION
  Report Type: Spontaneous
  Country: US (occurrence: US)
  Receive Date: 20130912
  Receipt Date: 20131209
  Transmission Date: 20140711
  Serious: Yes (Hospitalization)
  Sender: FDA-Public Use
  Company Number: US-JNJFOC-20130902724

PATIENT
  Age: 20 Year
  Sex: Male
  Weight: 75.75 kg

DRUGS (7)
  1. INVOKANA [Suspect]
     Indication: TYPE 1 DIABETES MELLITUS
     Route: 048
     Dates: start: 201308, end: 20130906
  2. INVOKANA [Suspect]
     Indication: TYPE 1 DIABETES MELLITUS
     Route: 048
     Dates: start: 20130615, end: 2013
  3. INVOKANA [Suspect]
     Indication: TYPE 1 DIABETES MELLITUS
     Route: 048
     Dates: start: 201307, end: 201308
  4. LANTUS [Concomitant]
     Indication: TYPE 1 DIABETES MELLITUS
     Dates: start: 2004
  5. NOVOLOG [Concomitant]
     Indication: TYPE 1 DIABETES MELLITUS
     Dosage: SLIDING SCALE
     Dates: start: 2004
  6. ADDERALL [Concomitant]
     Dates: start: 2008
  7. BABY ASPIRIN [Concomitant]
     Indication: CARDIOVASCULAR EVENT PROPHYLAXIS

REACTIONS (12)
  - Blood potassium decreased [Unknown]
  - Heat stroke [Recovered/Resolved]
  - Dehydration [Not Recovered/Not Resolved]
  - Weight decreased [Recovering/Resolving]
  - Blood glucose fluctuation [Not Recovered/Not Resolved]
  - Off label use [Unknown]
  - Adverse event [Unknown]
  - Gastrointestinal disorder [Not Recovered/Not Resolved]
  - Constipation [Recovering/Resolving]
  - Decreased appetite [Not Recovered/Not Resolved]
  - Insomnia [Not Recovered/Not Resolved]
  - Feeling abnormal [Not Recovered/Not Resolved]
